FAERS Safety Report 23395802 (Version 1)
Quarter: 2024Q1

REPORT INFORMATION
  Report Type: Other
  Country: US (occurrence: None)
  Receive Date: 20240112
  Receipt Date: 20240112
  Transmission Date: 20240409
  Serious: Yes (Other)
  Sender: FDA-Public Use
  Company Number: US-ROCHE-3485912

PATIENT
  Age: 49 Year
  Sex: Female
  Weight: 53.572 kg

DRUGS (7)
  1. OCREVUS [Suspect]
     Active Substance: OCRELIZUMAB
     Indication: Relapsing-remitting multiple sclerosis
     Dosage: DATE OF TREATMENT: 21/MAR/2023, 01/NOV/2023
     Route: 042
     Dates: start: 202303
  2. AMITRIPTYLINE [Concomitant]
     Active Substance: AMITRIPTYLINE
     Indication: Migraine
     Dosage: 30 MG ONCE A DAY, THREE 10 MG PILLS EVERY NIGHT ;ONGOING: YES
  3. MECLIZINE [Concomitant]
     Active Substance: MECLIZINE HYDROCHLORIDE
     Indication: Vertigo
     Dosage: AS NEEDED ;ONGOING: YES
  4. ADVIL [Concomitant]
     Active Substance: IBUPROFEN
     Dosage: AS NEEDED ;ONGOING: YES
  5. TYLENOL [Concomitant]
     Active Substance: ACETAMINOPHEN
     Dosage: AS NEEDED ;ONGOING: YES
  6. COPAXONE [Concomitant]
     Active Substance: GLATIRAMER ACETATE
  7. TYSABRI [Concomitant]
     Active Substance: NATALIZUMAB

REACTIONS (6)
  - Pneumonia [Recovered/Resolved]
  - COVID-19 [Recovered/Resolved with Sequelae]
  - Ear infection [Not Recovered/Not Resolved]
  - Fall [Unknown]
  - Contusion [Recovered/Resolved]
  - Arthralgia [Recovered/Resolved]

NARRATIVE: CASE EVENT DATE: 20230601
